FAERS Safety Report 6164597-6 (Version None)
Quarter: 2009Q2

REPORT INFORMATION
  Report Type: 
  Country: None (occurrence: None)
  Receive Date: 20090423
  Receipt Date: 20090415
  Transmission Date: 20091009
  Serious: Yes (Hospitalization)
  Sender: FDA-Public Use
  Company Number: SK-WYE-H08745309

PATIENT
  Sex: Male
  Weight: 68.5 kg

DRUGS (12)
  1. TEMSIROLIMUS [Suspect]
     Indication: METASTATIC RENAL CELL CARCINOMA
     Dosage: UNKNOWN
     Route: 042
     Dates: start: 20081212, end: 20090101
  2. TEMSIROLIMUS [Suspect]
     Route: 042
     Dates: start: 20090101, end: 20090301
  3. TEMSIROLIMUS [Suspect]
     Dosage: 15 MG - FREQUENCY NOT PROVIDED
     Route: 042
     Dates: start: 20090409
  4. MONOSAN [Concomitant]
     Indication: HYPERTENSION
     Dosage: NOT PROVIDED
     Route: 065
     Dates: start: 19990101
  5. HYDROCORTISONE 10MG TAB [Concomitant]
     Dosage: NOT PROVIDED
     Route: 065
     Dates: start: 20081029
  6. VITACALCIN [Concomitant]
     Indication: OSTEOPENIA
     Dosage: NOT PROVIDED
     Route: 065
     Dates: start: 20081023
  7. PERINDOPRIL [Concomitant]
     Indication: HYPERTENSION
     Dosage: NOT PROVIDED
     Route: 065
     Dates: start: 20081023
  8. ANOPYRIN [Concomitant]
     Indication: PROPHYLAXIS
     Dosage: NOT PROVIDED
     Route: 065
     Dates: start: 19980101
  9. BEVACIZUMAB [Suspect]
     Indication: METASTATIC RENAL CELL CARCINOMA
     Dosage: UNKNOWN
     Route: 042
     Dates: start: 20081212, end: 20090101
  10. BEVACIZUMAB [Suspect]
     Route: 042
     Dates: start: 20090101, end: 20090301
  11. BEVACIZUMAB [Suspect]
     Dosage: 10 MG/KG - FREQUNCY NOT PROVIDED
     Route: 042
     Dates: start: 20090409
  12. SIMCOR [Concomitant]
     Indication: DYSLIPIDAEMIA
     Dosage: NOT PROVIDED
     Route: 065
     Dates: start: 19990101

REACTIONS (1)
  - PROCTITIS [None]
